FAERS Safety Report 7906098-8 (Version None)
Quarter: 2011Q4

REPORT INFORMATION
  Report Type: 
  Country: None (occurrence: None)
  Receive Date: 20111110
  Receipt Date: 20111109
  Transmission Date: 20120403
  Serious: Yes (Death, Hospitalization)
  Sender: FDA-Public Use
  Company Number: US-ABBOTT-11P-163-0867119-00

PATIENT
  Sex: Male
  Weight: 73.094 kg

DRUGS (15)
  1. ZEMPLAR [Suspect]
     Dates: start: 20080101, end: 20081101
  2. ZEMPLAR [Suspect]
     Dates: start: 20090401, end: 20091101
  3. ALBUTEROL [Concomitant]
     Indication: PRODUCT USED FOR UNKNOWN INDICATION
     Dosage: 2 PUFFS Q 6 HOURS
     Route: 055
  4. LOTREL [Concomitant]
     Indication: PRODUCT USED FOR UNKNOWN INDICATION
     Dosage: 5/20 MG
  5. LIPITOR [Concomitant]
     Indication: PRODUCT USED FOR UNKNOWN INDICATION
     Dosage: DAILY
  6. ZEMPLAR [Suspect]
     Dates: start: 20091101, end: 20101101
  7. GLIPIZIDE [Concomitant]
     Indication: PRODUCT USED FOR UNKNOWN INDICATION
     Dosage: 4 TIMES A WEEK
  8. LASIX [Concomitant]
     Indication: PRODUCT USED FOR UNKNOWN INDICATION
     Dosage: DAILY
  9. ZEMPLAR [Suspect]
     Indication: HYPERPARATHYROIDISM
     Dates: start: 20071128, end: 20080101
  10. FLOMAX [Concomitant]
     Indication: PRODUCT USED FOR UNKNOWN INDICATION
     Dosage: DAILY
     Route: 048
  11. VITAMIN E [Concomitant]
     Indication: PRODUCT USED FOR UNKNOWN INDICATION
     Dosage: DAILY
  12. ZOCOR [Concomitant]
     Indication: HYPERLIPIDAEMIA
     Dates: end: 20110518
  13. ZEMPLAR [Suspect]
     Dates: start: 20101101, end: 20110101
  14. ZEMPLAR [Suspect]
     Dates: start: 20110101, end: 20110401
  15. KAYEXLATE [Concomitant]
     Indication: PRODUCT USED FOR UNKNOWN INDICATION
     Dosage: 15 GM TWICE WEEKLY

REACTIONS (5)
  - DYSPNOEA [None]
  - MALAISE [None]
  - RENAL FAILURE [None]
  - CHRONIC OBSTRUCTIVE PULMONARY DISEASE [None]
  - TYPE 2 DIABETES MELLITUS [None]
